FAERS Safety Report 7080051-1 (Version None)
Quarter: 2010Q4

REPORT INFORMATION
  Report Type: 
  Country: None (occurrence: None)
  Receive Date: 20101102
  Receipt Date: 20100928
  Transmission Date: 20110411
  Serious: No
  Sender: FDA-Public Use
  Company Number: US-ABBOTT-10P-163-0675188-00

PATIENT
  Sex: Female
  Weight: 77.18 kg

DRUGS (1)
  1. BIAXIN [Suspect]
     Indication: BRONCHITIS CHRONIC
     Dates: start: 20060101, end: 20060101

REACTIONS (1)
  - PRURITUS [None]
